FAERS Safety Report 6608803-X (Version None)
Quarter: 2010Q1

REPORT INFORMATION
  Report Type: 
  Country: None (occurrence: None)
  Receive Date: 20100224
  Receipt Date: 20100224
  Transmission Date: 20100710
  Serious: No
  Sender: FDA-Public Use
  Company Number: None

PATIENT
  Age: 42 Year
  Sex: Male

DRUGS (1)
  1. NIACIN [Suspect]
     Dosage: 500-2000 Q HS PO
     Route: 048

REACTIONS (1)
  - FLUSHING [None]
